FAERS Safety Report 9259236 (Version 3)
Quarter: 2013Q2

REPORT INFORMATION
  Report Type: Spontaneous
  Country: US (occurrence: US)
  Receive Date: 20130426
  Receipt Date: 20130528
  Transmission Date: 20140414
  Serious: Yes (Death, Hospitalization)
  Sender: FDA-Public Use
  Company Number: US-GILEAD-2013-0073264

PATIENT
  Sex: Male

DRUGS (1)
  1. LETAIRIS [Suspect]
     Indication: PULMONARY HYPERTENSION
     Dosage: 5 MG, QD
     Route: 048
     Dates: start: 20110714

REACTIONS (8)
  - Cardiac failure congestive [Fatal]
  - Device related infection [Fatal]
  - Staphylococcal bacteraemia [Fatal]
  - Gastrointestinal haemorrhage [Fatal]
  - Arteriovenous malformation [Fatal]
  - Deep vein thrombosis [Unknown]
  - Anaemia [Unknown]
  - Oedema peripheral [Unknown]
